FAERS Safety Report 9478097 (Version 1)
Quarter: 2013Q3

REPORT INFORMATION
  Report Type: Spontaneous
  Country: US (occurrence: US)
  Receive Date: 20130827
  Receipt Date: 20130827
  Transmission Date: 20140515
  Serious: Yes (Hospitalization)
  Sender: FDA-Public Use
  Company Number: US-BAYER-2013-103187

PATIENT
  Age: 39 Year
  Sex: Female

DRUGS (9)
  1. YAZ [Suspect]
  2. LEXAPRO [Concomitant]
  3. SINGULAIR [Concomitant]
  4. ACTOPLUS MET [Concomitant]
  5. FERROUS SULFATE [Concomitant]
  6. PRAVASTATIN [Concomitant]
  7. SYNTHROID [Concomitant]
  8. LOVAZA [Concomitant]
  9. ORTHO-TRI-CYCLEN LO [Concomitant]

REACTIONS (2)
  - Deep vein thrombosis [None]
  - Pulmonary embolism [Recovered/Resolved]
